FAERS Safety Report 7582102-4 (Version None)
Quarter: 2011Q2

REPORT INFORMATION
  Report Type: 
  Country: None (occurrence: None)
  Receive Date: 20110630
  Receipt Date: 20110621
  Transmission Date: 20111010
  Serious: No
  Sender: FDA-Public Use
  Company Number: US-BIOGENIDEC-2011BI022884

PATIENT
  Sex: Male

DRUGS (1)
  1. TYSABRI [Suspect]
     Indication: MULTIPLE SCLEROSIS
     Route: 042
     Dates: start: 20091119

REACTIONS (5)
  - COORDINATION ABNORMAL [None]
  - STRESS [None]
  - BALANCE DISORDER [None]
  - MEMORY IMPAIRMENT [None]
  - DRUG INEFFECTIVE [None]
